FAERS Safety Report 8253556-5 (Version None)
Quarter: 2012Q2

REPORT INFORMATION
  Report Type: 
  Country: None (occurrence: None)
  Receive Date: 20120402
  Receipt Date: 20120306
  Transmission Date: 20120825
  Serious: No
  Sender: FDA-Public Use
  Company Number: US-AMGEN-USASP2012012152

PATIENT
  Age: 35 Year
  Sex: Female

DRUGS (1)
  1. ENBREL [Suspect]
     Indication: RHEUMATOID ARTHRITIS
     Dosage: 50 MG, QWK
     Dates: start: 20120101

REACTIONS (11)
  - INJECTION SITE ERYTHEMA [None]
  - INJECTION SITE URTICARIA [None]
  - CHEST PAIN [None]
  - INJECTION SITE RASH [None]
  - COUGH [None]
  - HEADACHE [None]
  - DYSPNOEA [None]
  - INJECTION SITE REACTION [None]
  - PAIN [None]
  - VOMITING [None]
  - INJECTION SITE SWELLING [None]
